FAERS Safety Report 8833568 (Version 2)
Quarter: 2012Q4

REPORT INFORMATION
  Report Type: 
  Country: US (occurrence: US)
  Receive Date: 20121010
  Receipt Date: 20121031
  Transmission Date: 20130627
  Serious: Yes (Other)
  Sender: FDA-Public Use
  Company Number: US-ROCHE-1131945

PATIENT
  Sex: Female

DRUGS (15)
  1. RITUXAN [Suspect]
     Indication: DIFFUSE LARGE B-CELL LYMPHOMA
     Route: 065
     Dates: start: 200111, end: 200205
  2. RITUXAN [Suspect]
     Indication: DIFFUSE LARGE B-CELL LYMPHOMA
     Route: 042
     Dates: start: 20011226
  3. RITUXAN [Suspect]
     Route: 042
     Dates: start: 20020116
  4. RITUXAN [Suspect]
     Route: 042
     Dates: start: 20020215
  5. RITUXAN [Suspect]
     Route: 042
     Dates: start: 20020308
  6. RITUXAN [Suspect]
     Route: 042
     Dates: start: 20020329
  7. VICODIN [Concomitant]
     Route: 048
  8. CYCLOPHOSPHAMIDE [Concomitant]
     Indication: DIFFUSE LARGE B-CELL LYMPHOMA
  9. CYCLOPHOSPHAMIDE [Concomitant]
     Indication: DIFFUSE LARGE B-CELL LYMPHOMA
  10. DOXORUBICIN HYDROCHLORIDE [Concomitant]
  11. VINCRISTINE [Concomitant]
  12. PREDNISONE [Concomitant]
  13. ZYPREXA [Concomitant]
     Route: 048
  14. TYLENOL [Concomitant]
     Dosage: 250 cc normal saline
     Route: 048
  15. BENADRYL [Concomitant]
     Dosage: in 500 cc normal saline
     Route: 065

REACTIONS (23)
  - Thrombosis [Unknown]
  - Deep vein thrombosis [Unknown]
  - Tooth abscess [Unknown]
  - Oedema peripheral [Unknown]
  - Oedema peripheral [Unknown]
  - Pain [Unknown]
  - Orthopnoea [Unknown]
  - Cough [Unknown]
  - Swelling face [Unknown]
  - Lymph node fibrosis [Unknown]
  - Dizziness [Unknown]
  - Constipation [Unknown]
  - Nausea [Recovered/Resolved]
  - Alopecia [Unknown]
  - Fatigue [Unknown]
  - Pain [Unknown]
  - Dyspnoea [Unknown]
  - Depression [Unknown]
  - Stomatitis [Unknown]
  - Skin exfoliation [Unknown]
  - Dry skin [Unknown]
  - Infection [Unknown]
  - Disease progression [Unknown]
